FAERS Safety Report 15301606 (Version 2)
Quarter: 2018Q3

REPORT INFORMATION
  Report Type: Spontaneous
  Country: US (occurrence: US)
  Receive Date: 20180821
  Receipt Date: 20180914
  Transmission Date: 20181010
  Serious: Yes (Other)
  Sender: FDA-Public Use
  Company Number: US-009507513-1808USA006783

PATIENT
  Age: 54 Year
  Sex: Male

DRUGS (1)
  1. KEYTRUDA [Suspect]
     Active Substance: PEMBROLIZUMAB
     Indication: METASTATIC MALIGNANT MELANOMA
     Dosage: 2 MG/KG EVERY 3 WEEKS

REACTIONS (4)
  - Systemic lupus erythematosus rash [Recovered/Resolved]
  - Autoimmune colitis [Unknown]
  - Therapy partial responder [Unknown]
  - Cholecystitis [Unknown]
